FAERS Safety Report 24552776 (Version 2)
Quarter: 2025Q3

REPORT INFORMATION
  Report Type: Spontaneous
  Country: EU (occurrence: EU)
  Receive Date: 20241027
  Receipt Date: 20250803
  Transmission Date: 20251020
  Serious: Yes (Hospitalization, Other)
  Sender: ALEXION PHARMACEUTICALS
  Company Number: None

PATIENT
  Age: 88 Year
  Sex: Female

DRUGS (3)
  1. DAPAGLIFLOZIN [Suspect]
     Active Substance: DAPAGLIFLOZIN
     Indication: Diabetes mellitus
     Dates: start: 20150908, end: 20240926
  2. METFORMIN HYDROCHLORIDE\SITAGLIPTIN [Suspect]
     Active Substance: METFORMIN HYDROCHLORIDE\SITAGLIPTIN
     Indication: Diabetes mellitus
     Dosage: STRENGTH: 50 MG/1000 MG
     Dates: start: 20240228, end: 20240926
  3. TOUJEO [Suspect]
     Active Substance: INSULIN GLARGINE
     Indication: Diabetes mellitus
     Dates: start: 20170227, end: 20240926

REACTIONS (2)
  - Syncope [Recovered/Resolved]
  - Hypoglycaemia [Unknown]

NARRATIVE: CASE EVENT DATE: 20240926
